FAERS Safety Report 9856659 (Version 2)
Quarter: 2014Q2

REPORT INFORMATION
  Report Type: Spontaneous
  Country: US (occurrence: US)
  Receive Date: 20140130
  Receipt Date: 20140513
  Transmission Date: 20141212
  Serious: Yes (Hospitalization, Other)
  Sender: FDA-Public Use
  Company Number: US-BAYER-2014-011498

PATIENT
  Age: 39 Year
  Sex: Female
  Weight: 93.42 kg

DRUGS (2)
  1. MIRENA [Suspect]
     Indication: CONTRACEPTION
     Dosage: 20 MCG/24HR, CONT
     Route: 015
     Dates: start: 20060602, end: 20120606
  2. SYNTHROID [Concomitant]
     Indication: THYROID FUNCTION TEST ABNORMAL
     Dosage: UNK
     Dates: start: 1998

REACTIONS (15)
  - Pregnancy with contraceptive device [Recovered/Resolved]
  - Drug ineffective [None]
  - Uterine perforation [None]
  - Injury [None]
  - Abdominal pain lower [None]
  - Device misuse [None]
  - Device dislocation [None]
  - Pelvic pain [None]
  - Abdominal pain lower [None]
  - Fatigue [None]
  - Weight increased [None]
  - Emotional distress [None]
  - Depression [None]
  - Stress [None]
  - Loss of libido [None]
